FAERS Safety Report 7939169-0 (Version None)
Quarter: 2011Q4

REPORT INFORMATION
  Report Type: 
  Country: None (occurrence: None)
  Receive Date: 20111124
  Receipt Date: 20111114
  Transmission Date: 20120403
  Serious: Yes (Death)
  Sender: FDA-Public Use
  Company Number: KR-BRISTOL-MYERS SQUIBB COMPANY-16230534

PATIENT
  Age: 72 Year
  Sex: Male

DRUGS (4)
  1. ETOPOSIDE [Suspect]
     Indication: ADRENOCORTICAL CARCINOMA
     Dosage: ON DAY 5-7
     Route: 042
  2. DOXORUBICIN HCL [Suspect]
     Indication: ADRENOCORTICAL CARCINOMA
     Dosage: DAYS 1 AND 8
     Route: 042
  3. MITOTANE [Suspect]
     Indication: ADRENOCORTICAL CARCINOMA
     Dosage: 2G/DAY (EVERY 4WK)
     Route: 048
  4. CISPLATIN [Suspect]
     Indication: ADRENOCORTICAL CARCINOMA
     Dosage: DAYS 2 AND 9
     Route: 042

REACTIONS (1)
  - LUNG INFECTION [None]
